FAERS Safety Report 9776554 (Version 1)
Quarter: 2013Q4

REPORT INFORMATION
  Report Type: Spontaneous
  Country: US (occurrence: US)
  Receive Date: 20131220
  Receipt Date: 20131220
  Transmission Date: 20140711
  Serious: No
  Sender: FDA-Public Use
  Company Number: US-GILEAD-2013-0090383

PATIENT
  Sex: Female

DRUGS (4)
  1. LETAIRIS [Suspect]
     Indication: PRODUCT USED FOR UNKNOWN INDICATION
     Dosage: 10 MG, QD
     Route: 065
     Dates: start: 20071128
  2. COUMADIN                           /00627701/ [Concomitant]
     Indication: PRODUCT USED FOR UNKNOWN INDICATION
  3. TRACLEER                           /01587701/ [Concomitant]
     Indication: PRODUCT USED FOR UNKNOWN INDICATION
  4. VENTAVIS [Concomitant]
     Indication: PRODUCT USED FOR UNKNOWN INDICATION

REACTIONS (1)
  - Nasopharyngitis [Unknown]
